FAERS Safety Report 24138477 (Version 4)
Quarter: 2025Q1

REPORT INFORMATION
  Report Type: Report from Study
  Country: US (occurrence: US)
  Receive Date: 20240725
  Receipt Date: 20250110
  Transmission Date: 20250409
  Serious: No
  Sender: GLAXOSMITHKLINE
  Company Number: US-GLAXOSMITHKLINE-US2024AMR092970

PATIENT

DRUGS (4)
  1. NIRAPARIB [Suspect]
     Active Substance: NIRAPARIB
     Indication: Dehydration
  2. NIRAPARIB [Suspect]
     Active Substance: NIRAPARIB
     Indication: Anaemia
  3. NIRAPARIB [Suspect]
     Active Substance: NIRAPARIB
     Indication: Aplastic anaemia
  4. NIRAPARIB [Suspect]
     Active Substance: NIRAPARIB
     Indication: Osteoarthritis

REACTIONS (1)
  - Off label use [Unknown]
